FAERS Safety Report 4458192-4 (Version None)
Quarter: 2004Q3

REPORT INFORMATION
  Report Type: 
  Country: None (occurrence: None)
  Receive Date: 20040917
  Receipt Date: 20040628
  Transmission Date: 20050211
  Serious: Yes (Other)
  Sender: FDA-Public Use
  Company Number: US-JNJFOC-20040306202

PATIENT
  Age: 77 Year
  Sex: Female
  Weight: 65.7716 kg

DRUGS (5)
  1. TOPAMAX [Suspect]
     Indication: MIGRAINE
     Dosage: 50 MG, 2 IN 1 DAY, ORAL; 50 MG, 2 IN 1 DAY, ORAL
     Route: 048
     Dates: start: 20030101
  2. TOPAMAX [Suspect]
     Indication: MIGRAINE
     Dosage: 50 MG, 2 IN 1 DAY, ORAL; 50 MG, 2 IN 1 DAY, ORAL
     Route: 048
     Dates: start: 20030101
  3. FORTEO (TERIPARATIDE) INJECTION [Concomitant]
  4. SYNTHROID (LEVOTHYROXINCE SODIUM) [Concomitant]
  5. PRAVACHOL [Concomitant]

REACTIONS (4)
  - ABDOMINAL DISCOMFORT [None]
  - PAIN OF SKIN [None]
  - STASIS DERMATITIS [None]
  - URTICARIA [None]
